FAERS Safety Report 11769672 (Version 5)
Quarter: 2016Q3

REPORT INFORMATION
  Report Type: Spontaneous
  Country: DK (occurrence: DK)
  Receive Date: 20151123
  Receipt Date: 20160927
  Transmission Date: 20161109
  Serious: Yes (Congenital Anomaly, Other)
  Sender: FDA-Public Use
  Company Number: DK-PFIZER INC-2015397327

PATIENT
  Sex: Male
  Weight: 1.25 kg

DRUGS (3)
  1. CELESTON [Concomitant]
     Active Substance: BETAMETHASONE
     Indication: MATERNAL THERAPY TO ENHANCE FOETAL LUNG MATURITY
     Dosage: GIVEN IN WEEK 30+4 AND 30+5
     Route: 007
  2. DEPO-MEDROL [Suspect]
     Active Substance: METHYLPREDNISOLONE ACETATE
     Indication: KELOID SCAR
     Dosage: 20 MG (40 MG/ML, 0.5 ML), SINGLE
     Route: 064
     Dates: start: 20121129, end: 20121129
  3. METFORMIN ACTAVIS [Concomitant]
     Active Substance: METFORMIN HYDROCHLORIDE
     Indication: DIABETES MELLITUS
     Route: 064

REACTIONS (8)
  - Foetal exposure during pregnancy [Recovered/Resolved]
  - Ventricular septal defect [Unknown]
  - Renal fusion anomaly [Unknown]
  - VACTERL syndrome [Not Recovered/Not Resolved]
  - Congenital spinal fusion [Unknown]
  - Congenital oesophageal anomaly [Unknown]
  - Congenital gastric anomaly [Unknown]
  - Premature baby [Unknown]

NARRATIVE: CASE EVENT DATE: 20121129
